FAERS Safety Report 9129519 (Version 2)
Quarter: 2013Q2

REPORT INFORMATION
  Report Type: Spontaneous
  Country: IT (occurrence: IT)
  Receive Date: 20130228
  Receipt Date: 20130415
  Transmission Date: 20140414
  Serious: Yes (Hospitalization)
  Sender: FDA-Public Use
  Company Number: IT-UCBSA-079393

PATIENT
  Age: 62 Year
  Sex: Female
  Weight: 55 kg

DRUGS (9)
  1. CIMZIA [Suspect]
     Indication: RHEUMATOID ARTHRITIS
     Dosage: 200 MG INJECTABLE SOLUTION
     Route: 058
     Dates: start: 20121123, end: 20121218
  2. ARAVA [Concomitant]
     Indication: RHEUMATOID ARTHRITIS
     Dosage: 20 MG 30 FILM COATED TABLETS
     Route: 048
     Dates: start: 20110401, end: 20130220
  3. PLAQUENIL [Concomitant]
     Indication: RHEUMATOID ARTHRITIS
     Dosage: 200 MG 25 COATED TABLETS
     Route: 048
     Dates: start: 19910101, end: 20130220
  4. CELEBREX [Concomitant]
     Indication: RHEUMATOID ARTHRITIS
     Dosage: 200 MG
     Dates: start: 20110401, end: 20130220
  5. PANTOPRAZOLO EG [Concomitant]
     Indication: GASTROINTESTINAL DISORDER
     Dosage: 40 MG, 14 GASTRORESISTANT TABLETS
     Route: 048
     Dates: start: 20111201, end: 20130220
  6. DELTACORTENE [Concomitant]
     Indication: RHEUMATOID ARTHRITIS
     Dosage: 5 MG 10 TABLETS
     Route: 048
     Dates: start: 20110401, end: 20130220
  7. EUTIROX [Concomitant]
     Indication: THYROID DISORDER
     Dosage: 50 ?G, 50 TABLETS
     Route: 048
     Dates: start: 19980101, end: 20130220
  8. CALCIO CARBONATO VITAMINA D3 [Concomitant]
     Indication: OSTEOPOROSIS
     Dosage: 1000 MG+ 880 IU EFFERVESCENT GRANULES 30 SACHETS
     Route: 048
     Dates: start: 20110401, end: 20130220
  9. ALENDRONATO EG [Concomitant]
     Indication: OSTEOPOROSIS
     Dosage: 70 MG, 4 TABLETS
     Route: 048
     Dates: start: 20110401, end: 20130220

REACTIONS (1)
  - Autoimmune haemolytic anaemia [Recovering/Resolving]
